FAERS Safety Report 6942042-8 (Version None)
Quarter: 2010Q3

REPORT INFORMATION
  Report Type: 
  Country: None (occurrence: None)
  Receive Date: 20100826
  Receipt Date: 20100817
  Transmission Date: 20110219
  Serious: Yes (Other)
  Sender: FDA-Public Use
  Company Number: US-JNJFOC-20100807793

PATIENT
  Sex: Female
  Weight: 58.97 kg

DRUGS (4)
  1. FENTANYL CITRATE [Suspect]
     Indication: BACK PAIN
     Route: 062
  2. FENTANYL CITRATE [Suspect]
     Route: 062
  3. KLONOPIN [Concomitant]
     Indication: FEELING OF RELAXATION
     Route: 048
  4. PERCOCET [Concomitant]
     Indication: PAIN
     Route: 048

REACTIONS (8)
  - ALOPECIA [None]
  - BLOOD CHOLESTEROL INCREASED [None]
  - BLOOD TRIGLYCERIDES INCREASED [None]
  - DEPRESSION [None]
  - LOW DENSITY LIPOPROTEIN INCREASED [None]
  - PANIC ATTACK [None]
  - PRODUCT ADHESION ISSUE [None]
  - WRONG TECHNIQUE IN DRUG USAGE PROCESS [None]
